FAERS Safety Report 15744743 (Version 2)
Quarter: 2018Q4

REPORT INFORMATION
  Report Type: Report from Study
  Country: US (occurrence: RO)
  Receive Date: 20181220
  Receipt Date: 20181226
  Transmission Date: 20190205
  Serious: Yes (Death, Other)
  Sender: FDA-Public Use
  Company Number: US-SUNOVION-2018SUN004959

PATIENT

DRUGS (4)
  1. INDACATEROL AND GLYCOPYRROLATE [Suspect]
     Active Substance: GLYCOPYRROLATE\INDACATEROL MALEATE
     Indication: CHRONIC OBSTRUCTIVE PULMONARY DISEASE
     Dosage: 1 DF, QD (FOR 1 MONTH)
     Route: 065
  2. BETASERC [Concomitant]
     Active Substance: BETAHISTINE
  3. AMOXICILLIN. [Concomitant]
     Active Substance: AMOXICILLIN
  4. AMPICILLIN [Concomitant]
     Active Substance: AMPICILLIN

REACTIONS (1)
  - Death [Fatal]

NARRATIVE: CASE EVENT DATE: 20181121
